FAERS Safety Report 4360235-3 (Version None)
Quarter: 2004Q2

REPORT INFORMATION
  Report Type: 
  Country: None (occurrence: None)
  Receive Date: 20040518
  Receipt Date: 20040518
  Transmission Date: 20050107
  Serious: Yes (Hospitalization)
  Sender: FDA-Public Use
  Company Number: None

PATIENT
  Sex: Male

DRUGS (7)
  1. DEXAMETHASONE [Suspect]
     Indication: METASTASES TO CENTRAL NERVOUS SYSTEM
     Dosage: 4 MG PO TID
     Route: 048
     Dates: start: 20040126, end: 20040209
  2. DEXAMETHASONE [Suspect]
     Indication: OEDEMA
     Dosage: 4 MG PO TID
     Route: 048
     Dates: start: 20040126, end: 20040209
  3. LANSOPRAZOLE [Concomitant]
  4. DOXAZOSIN [Concomitant]
  5. FLUCONAZOLE [Concomitant]
  6. VERAPAMIL [Concomitant]
  7. FEXOFENADINE HCL [Concomitant]

REACTIONS (5)
  - BLOOD GLUCOSE INCREASED [None]
  - CONFUSIONAL STATE [None]
  - FATIGUE [None]
  - POLYDIPSIA [None]
  - URINE ANALYSIS ABNORMAL [None]
